FAERS Safety Report 6518255-6 (Version None)
Quarter: 2009Q4

REPORT INFORMATION
  Report Type: 
  Country: None (occurrence: None)
  Receive Date: 20091223
  Receipt Date: 20091223
  Transmission Date: 20100525
  Serious: Yes (Hospitalization)
  Sender: FDA-Public Use
  Company Number: None

PATIENT
  Age: 16 Year
  Sex: Male
  Weight: 65.7716 kg

DRUGS (2)
  1. MINOCYCLINE HCL [Suspect]
     Indication: ACNE
     Dosage: 90 MG 1X DAY
     Dates: start: 20091102
  2. MINOCYCLINE HCL [Suspect]
     Indication: ACNE
     Dosage: 90 MG 1X DAY
     Dates: start: 20091105

REACTIONS (15)
  - ABDOMINAL PAIN UPPER [None]
  - ARTHRALGIA [None]
  - COUGH [None]
  - DIZZINESS [None]
  - DYSPHAGIA [None]
  - JOINT SWELLING [None]
  - LIP SWELLING [None]
  - MYALGIA [None]
  - RASH [None]
  - SWELLING FACE [None]
  - SWOLLEN TONGUE [None]
  - TRISMUS [None]
  - URTICARIA [None]
  - VOMITING [None]
  - WEIGHT DECREASED [None]
